FAERS Safety Report 18508231 (Version 1)
Quarter: 2020Q4

REPORT INFORMATION
  Report Type: Other
  Country: US (occurrence: US)
  Receive Date: 20201116
  Receipt Date: 20201116
  Transmission Date: 20210114
  Serious: Yes (Hospitalization, Other)
  Sender: FDA-Public Use
  Company Number: US-XSPIRE PHARMA, LLC-2095957

PATIENT
  Age: 35 Year
  Sex: Male
  Weight: 84.09 kg

DRUGS (2)
  1. DEXAMETHASONE. [Suspect]
     Active Substance: DEXAMETHASONE
     Indication: NEURALGIA
     Route: 050
     Dates: start: 20170916, end: 20170916
  2. BUPIVACAINE. [Concomitant]
     Active Substance: BUPIVACAINE
     Route: 050
     Dates: start: 20170916, end: 20170916

REACTIONS (1)
  - Substance-induced psychotic disorder [Recovered/Resolved]

NARRATIVE: CASE EVENT DATE: 20170917
